FAERS Safety Report 4659610-9 (Version None)
Quarter: 2005Q2

REPORT INFORMATION
  Report Type: 
  Country: None (occurrence: None)
  Receive Date: 20050510
  Receipt Date: 20050428
  Transmission Date: 20051028
  Serious: Yes (Other)
  Sender: FDA-Public Use
  Company Number: 2005061827

PATIENT
  Age: 25 Year
  Sex: Male

DRUGS (3)
  1. BEXTRA [Suspect]
     Indication: MYALGIA
     Dosage: 1 IN 1 D, ORAL
     Route: 048
     Dates: start: 20050201
  2. CYCLOBENZAPRINE HCL [Concomitant]
  3. CANDESARTAN CILEXETIL (CANDESARTAN CILEXETIL) [Concomitant]

REACTIONS (4)
  - BLISTER [None]
  - HYPERSENSITIVITY [None]
  - PRURITUS [None]
  - RASH PAPULAR [None]
